FAERS Safety Report 7590956-0 (Version None)
Quarter: 2011Q3

REPORT INFORMATION
  Report Type: 
  Country: None (occurrence: None)
  Receive Date: 20110705
  Receipt Date: 20110628
  Transmission Date: 20111222
  Serious: Yes (Life-Threatening)
  Sender: FDA-Public Use
  Company Number: PHHY2011US57125

PATIENT
  Sex: Male

DRUGS (8)
  1. VYVANSE [Concomitant]
  2. TEGRETOL [Concomitant]
     Dosage: UNK
  3. FOCALIN XR [Suspect]
     Dosage: 5 MG, QD
     Route: 048
  4. KLONOPIN [Concomitant]
  5. PREDNISONE [Concomitant]
  6. FOLIC ACID [Concomitant]
  7. CITALOPRAM [Concomitant]
  8. FAMOTIDINE [Concomitant]

REACTIONS (9)
  - SWELLING FACE [None]
  - EYE SWELLING [None]
  - PHARYNGEAL OEDEMA [None]
  - SWOLLEN TONGUE [None]
  - OEDEMA MOUTH [None]
  - LIP SWELLING [None]
  - APPARENT DEATH [None]
  - LARYNGEAL OEDEMA [None]
  - DYSPNOEA [None]
